FAERS Safety Report 7659608-2 (Version None)
Quarter: 2011Q3

REPORT INFORMATION
  Report Type: 
  Country: None (occurrence: None)
  Receive Date: 20110805
  Receipt Date: 20110802
  Transmission Date: 20111222
  Serious: Yes (Other)
  Sender: FDA-Public Use
  Company Number: US-MERCK-1108USA00297

PATIENT
  Sex: Female

DRUGS (2)
  1. FORTEO [Suspect]
     Indication: OSTEOPOROSIS
     Route: 051
     Dates: start: 20110505
  2. FOSAMAX [Suspect]
     Route: 048

REACTIONS (3)
  - FEMUR FRACTURE [None]
  - INJECTION SITE HAEMATOMA [None]
  - CONTUSION [None]
